FAERS Safety Report 15473175 (Version 1)
Quarter: 2018Q4

REPORT INFORMATION
  Report Type: Spontaneous
  Country: US (occurrence: US)
  Receive Date: 20181008
  Receipt Date: 20181008
  Transmission Date: 20190205
  Serious: No
  Sender: FDA-Public Use
  Company Number: US-JNJFOC-20180922266

PATIENT
  Sex: Female

DRUGS (1)
  1. LEVAQUIN [Suspect]
     Active Substance: LEVOFLOXACIN
     Indication: PRODUCT USED FOR UNKNOWN INDICATION
     Route: 048

REACTIONS (7)
  - Mental disorder [Not Recovered/Not Resolved]
  - Dissociation [Unknown]
  - Eye swelling [Recovered/Resolved]
  - Insomnia [Unknown]
  - Confusional state [Unknown]
  - Tendon pain [Not Recovered/Not Resolved]
  - Hallucination [Unknown]
